FAERS Safety Report 26129351 (Version 2)
Quarter: 2025Q4

REPORT INFORMATION
  Report Type: Spontaneous
  Country: US (occurrence: US)
  Receive Date: 20251208
  Receipt Date: 20251223
  Transmission Date: 20260118
  Serious: Yes (Hospitalization)
  Sender: ACCORD
  Company Number: US-Accord-516621

PATIENT
  Age: 19 Year
  Sex: Female

DRUGS (2)
  1. LEUPROLIDE [Suspect]
     Active Substance: LEUPROLIDE
     Indication: Endometriosis
     Dosage: IN THE LEFT DELTOID
  2. LEUPROLIDE [Suspect]
     Active Substance: LEUPROLIDE
     Indication: Precocious puberty
     Dosage: IN THE LEFT DELTOID

REACTIONS (2)
  - Injection site abscess sterile [Recovered/Resolved with Sequelae]
  - Off label use [Unknown]
